FAERS Safety Report 9823637 (Version 3)
Quarter: 2015Q3

REPORT INFORMATION
  Report Type: Spontaneous
  Country: US (occurrence: US)
  Receive Date: 20140116
  Receipt Date: 20150807
  Transmission Date: 20151125
  Serious: No
  Sender: FDA-Public Use
  Company Number: US-GILEAD-2011-0038614

PATIENT
  Age: 62 Year
  Sex: Female

DRUGS (1)
  1. LETAIRIS [Suspect]
     Active Substance: AMBRISENTAN
     Indication: PORTOPULMONARY HYPERTENSION
     Route: 048
     Dates: start: 20110218, end: 20110413

REACTIONS (7)
  - Neck pain [Unknown]
  - Asthenia [Unknown]
  - Abdominal discomfort [Unknown]
  - Palpitations [Unknown]
  - Eye haemorrhage [Unknown]
  - Abdominal pain [Unknown]
  - Dizziness [Unknown]
